FAERS Safety Report 11878242 (Version 1)
Quarter: 2015Q4

REPORT INFORMATION
  Report Type: Report from Study
  Country: JP (occurrence: JP)
  Receive Date: 20151230
  Receipt Date: 20151230
  Transmission Date: 20160305
  Serious: Yes (Other)
  Sender: FDA-Public Use
  Company Number: PHJP2015JP021709

PATIENT
  Age: 44 Year
  Sex: Male
  Weight: 52 kg

DRUGS (5)
  1. MYCOPHENOLATE MOFETIL. [Concomitant]
     Active Substance: MYCOPHENOLATE MOFETIL
     Indication: RENAL TRANSPLANT
     Dosage: 1000 MG, UNK
     Route: 065
     Dates: start: 20150930
  2. TACROLIMUS. [Concomitant]
     Active Substance: TACROLIMUS
     Indication: RENAL TRANSPLANT
     Dosage: 5.5 MG, UNK
     Route: 065
     Dates: start: 20150930
  3. TACROLIMUS. [Concomitant]
     Active Substance: TACROLIMUS
     Dosage: 5.5 MG, UNK
     Route: 065
     Dates: start: 20151031
  4. MYCOPHENOLATE MOFETIL. [Concomitant]
     Active Substance: MYCOPHENOLATE MOFETIL
     Dosage: 1000 MG, UNK
     Route: 065
     Dates: start: 20151031
  5. CERTICAN [Suspect]
     Active Substance: EVEROLIMUS
     Indication: RENAL TRANSPLANT
     Dosage: 0.5 MG, UNK
     Route: 048
     Dates: start: 20150930, end: 20151107

REACTIONS (1)
  - Albumin urine present [Recovered/Resolved]

NARRATIVE: CASE EVENT DATE: 20151031
